FAERS Safety Report 4626532-9 (Version None)
Quarter: 2005Q1

REPORT INFORMATION
  Report Type: 
  Country: None (occurrence: None)
  Receive Date: 20050330
  Receipt Date: 20050311
  Transmission Date: 20050727
  Serious: Yes (Hospitalization, Other)
  Sender: FDA-Public Use
  Company Number: US_0406103928

PATIENT
  Age: 55 Year
  Sex: Male
  Weight: 105 kg

DRUGS (22)
  1. ZYPREXA [Suspect]
     Indication: PSYCHOTIC DISORDER
     Dosage: 20 MG AT BEDTIME
  2. HUMULIN N [Suspect]
  3. LITHIUM CARBONATE [Concomitant]
  4. SYMMETREL [Concomitant]
  5. ATIVAN [Concomitant]
  6. VIOXX [Concomitant]
  7. CELEBREX [Concomitant]
  8. ZOCOR (SIMVASTATIN RATIOPHARM) [Concomitant]
  9. ACIPHEX [Concomitant]
  10. HYDROCHLOROTHIAZIDE [Concomitant]
  11. TYLENOL [Concomitant]
  12. RABEPRAZOLE SODIUM [Concomitant]
  13. SIMVASTATIN ^ORIFARM^ (SIMVASTATIN RATIOPHARM) [Concomitant]
  14. PROTOXNIX (PANTROPRAZOLE) [Concomitant]
  15. SUDAFED 12 HOUR [Concomitant]
  16. ROBITUSSIN [Concomitant]
  17. METFORMIN HCL [Concomitant]
  18. RISPERDAL [Concomitant]
  19. NICORETTE [Concomitant]
  20. BENALAPRIL (ENALAPRIL) [Concomitant]
  21. NICORETTE [Concomitant]
  22. KEFLEX [Concomitant]

REACTIONS (25)
  - AGGRESSION [None]
  - ALANINE AMINOTRANSFERASE INCREASED [None]
  - ALBUMIN GLOBULIN RATIO DECREASED [None]
  - ANION GAP INCREASED [None]
  - BETA HAEMOLYTIC STREPTOCOCCAL INFECTION [None]
  - BLOOD CHLORIDE DECREASED [None]
  - BLOOD SODIUM DECREASED [None]
  - BLOOD TRIGLYCERIDES INCREASED [None]
  - DIABETES MELLITUS [None]
  - DIABETIC KETOACIDOSIS [None]
  - FUNGUS URINE TEST POSITIVE [None]
  - HIGH DENSITY LIPOPROTEIN DECREASED [None]
  - MEAN CELL HAEMOGLOBIN INCREASED [None]
  - MEAN CELL VOLUME INCREASED [None]
  - MICTURITION DISORDER [None]
  - MONOCYTE COUNT INCREASED [None]
  - MOTOR DYSFUNCTION [None]
  - NEUTROPHIL COUNT DECREASED [None]
  - NEUTROPHIL COUNT INCREASED [None]
  - PENIS DISORDER [None]
  - SPECIFIC GRAVITY URINE INCREASED [None]
  - URINARY SEDIMENT PRESENT [None]
  - URINE ANALYSIS ABNORMAL [None]
  - VISION BLURRED [None]
  - WHITE BLOOD CELL COUNT INCREASED [None]
